FAERS Safety Report 6548328-3 (Version None)
Quarter: 2010Q1

REPORT INFORMATION
  Report Type: 
  Country: None (occurrence: None)
  Receive Date: 20100124
  Receipt Date: 20090610
  Transmission Date: 20100710
  Serious: No
  Sender: FDA-Public Use
  Company Number: US-ALLERGAN-0906626US

PATIENT
  Age: 88 Year
  Sex: Female
  Weight: 61.224 kg

DRUGS (2)
  1. RESTASIS [Suspect]
     Indication: DRY EYE
     Dosage: UNK, UNKNOWN
     Route: 047
  2. RESTASIS [Suspect]
     Indication: SJOGREN'S SYNDROME
     Dosage: UNK, BID
     Route: 047
     Dates: start: 20090401, end: 20090513

REACTIONS (3)
  - DRUG INEFFECTIVE [None]
  - EYE PAIN [None]
  - KERATITIS [None]
